FAERS Safety Report 4877821-4 (Version None)
Quarter: 2006Q1

REPORT INFORMATION
  Report Type: 
  Country: None (occurrence: None)
  Receive Date: 20060109
  Receipt Date: 20051227
  Transmission Date: 20060701
  Serious: Yes (Death, Hospitalization)
  Sender: FDA-Public Use
  Company Number: 01/05121-USE

PATIENT
  Age: 79 Year
  Sex: Female

DRUGS (12)
  1. BETASERON [Suspect]
     Indication: SECONDARY PROGRESSIVE MULTIPLE SCLEROSIS
     Dosage: 8 MIU, EVERY 2D, SUBCUTANEOUS
     Route: 058
     Dates: start: 19990112, end: 20010528
  2. NEURONTIN [Concomitant]
  3. TRAZODONE (TRAZODONE) [Concomitant]
  4. TOPROL-XL [Concomitant]
  5. AMANTADINE HCL [Concomitant]
  6. BACLOFEN [Concomitant]
  7. DETROL [Concomitant]
  8. CALCIUM (CALCIUM) [Concomitant]
  9. VITAMIN C + E CAPLETS [Concomitant]
  10. PROVIGIL [Concomitant]
  11. VICODIN [Concomitant]
  12. SOLU-MEDROL [Concomitant]

REACTIONS (2)
  - DISEASE PROGRESSION [None]
  - SECONDARY PROGRESSIVE MULTIPLE SCLEROSIS [None]
